FAERS Safety Report 7788450-7 (Version None)
Quarter: 2011Q3

REPORT INFORMATION
  Report Type: 
  Country: None (occurrence: None)
  Receive Date: 20110927
  Receipt Date: 20110912
  Transmission Date: 20111222
  Serious: Yes (Other)
  Sender: FDA-Public Use
  Company Number: US-JNJFOC-20110907816

PATIENT
  Sex: Male

DRUGS (3)
  1. ASCORBIC ACID [Suspect]
     Indication: MYELODYSPLASTIC SYNDROME
     Dosage: 1000 MG, INTRAVENOUS
     Route: 042
  2. ARSENIC TRIOXIDE [Suspect]
     Indication: MYELODYSPLASTIC SYNDROME
     Dosage: 0.1 MG/KG, 1 IN 1 DAY, INTRAVENOUS
     Route: 042
  3. DECITABINE [Suspect]
     Indication: MYELODYSPLASTIC SYNDROME
     Dosage: 20 MG/KG, 1 IN 1 DAY, INTRAVENOUS
     Route: 042

REACTIONS (1)
  - PERICARDIAL EFFUSION [None]
